FAERS Safety Report 20761052 (Version 5)
Quarter: 2023Q2

REPORT INFORMATION
  Report Type: Report from Study
  Country: US (occurrence: US)
  Receive Date: 20220428
  Receipt Date: 20230513
  Transmission Date: 20230722
  Serious: Yes (Other)
  Sender: FDA-Public Use
  Company Number: US-TAKEDA-2021TUS022373

PATIENT
  Age: 45 Year
  Sex: Female
  Weight: 80 kg

DRUGS (35)
  1. HUMAN IMMUNOGLOBULIN G [Suspect]
     Active Substance: HUMAN IMMUNOGLOBULIN G
     Indication: Polyneuropathy
     Dosage: 30 GRAM
     Route: 042
     Dates: start: 20210414
  2. HUMAN IMMUNOGLOBULIN G [Suspect]
     Active Substance: HUMAN IMMUNOGLOBULIN G
     Indication: Sarcoidosis
     Dosage: 30 GRAM, Q2WEEKS
     Route: 042
     Dates: start: 20220209
  3. HUMAN IMMUNOGLOBULIN G [Suspect]
     Active Substance: HUMAN IMMUNOGLOBULIN G
     Indication: Radiculopathy
     Dosage: 30 GRAM, Q2WEEKS
     Route: 042
     Dates: start: 20220309
  4. ACETAMINOPHEN [Concomitant]
     Active Substance: ACETAMINOPHEN
  5. DIPHENHYDRAMINE HYDROCHLORIDE [Concomitant]
     Active Substance: DIPHENHYDRAMINE HYDROCHLORIDE
  6. SODIUM CHLORIDE [Concomitant]
     Active Substance: SODIUM CHLORIDE
  7. SODIUM CHLORIDE [Concomitant]
     Active Substance: SODIUM CHLORIDE
  8. PROCHLORPERAZINE [Concomitant]
     Active Substance: PROCHLORPERAZINE
  9. ADRENALIN [Concomitant]
     Active Substance: EPINEPHRINE
  10. COMPAZINE [Concomitant]
     Active Substance: PROCHLORPERAZINE MALEATE
  11. EPINEPHRINE [Concomitant]
     Active Substance: EPINEPHRINE
  12. Lmx [Concomitant]
  13. SOLU-CORTEF MIX O [Concomitant]
  14. BACLOFEN [Concomitant]
     Active Substance: BACLOFEN
  15. TRULICITY [Concomitant]
     Active Substance: DULAGLUTIDE
  16. EMGALITY [Concomitant]
     Active Substance: GALCANEZUMAB-GNLM
  17. KETOROLAC TROMETHAMINE [Concomitant]
     Active Substance: KETOROLAC TROMETHAMINE
  18. CLONAZEPAM [Concomitant]
     Active Substance: CLONAZEPAM
  19. CYCLOBENZAPRINE [Concomitant]
     Active Substance: CYCLOBENZAPRINE
  20. ACETAMINOPHEN\OXYCODONE HYDROCHLORIDE\OXYCODONE TEREPHTHALATE [Concomitant]
     Active Substance: ACETAMINOPHEN\OXYCODONE HYDROCHLORIDE\OXYCODONE TEREPHTHALATE
  21. LISINOPRIL [Concomitant]
     Active Substance: LISINOPRIL
  22. METFORMIN HYDROCHLORIDE [Concomitant]
     Active Substance: METFORMIN HYDROCHLORIDE
  23. POTASSIUM [Concomitant]
     Active Substance: POTASSIUM
  24. FOLIC ACID [Concomitant]
     Active Substance: FOLIC ACID
  25. GABAPENTIN [Concomitant]
     Active Substance: GABAPENTIN
  26. FUROSEMIDE [Concomitant]
     Active Substance: FUROSEMIDE
  27. BIOTIN [Concomitant]
     Active Substance: BIOTIN
  28. HEPARIN [Concomitant]
     Active Substance: HEPARIN SODIUM
  29. ZYRTEC [Concomitant]
     Active Substance: CETIRIZINE HYDROCHLORIDE
  30. RIZATRIPTAN [Concomitant]
     Active Substance: RIZATRIPTAN
  31. TAMSULOSIN [Concomitant]
     Active Substance: TAMSULOSIN
  32. TOPAMAX [Concomitant]
     Active Substance: TOPIRAMATE
  33. AZELAIC ACID [Concomitant]
     Active Substance: AZELAIC ACID
  34. LEVOFLOXACIN [Concomitant]
     Active Substance: LEVOFLOXACIN
  35. OZEMPIC [Concomitant]
     Active Substance: SEMAGLUTIDE

REACTIONS (9)
  - Neuropathy peripheral [Unknown]
  - Myopathy [Unknown]
  - Ear pain [Not Recovered/Not Resolved]
  - Muscle spasms [Unknown]
  - Back pain [Unknown]
  - Lymphadenopathy [Unknown]
  - Rash [Recovered/Resolved]
  - Product use issue [Unknown]
  - Off label use [Unknown]

NARRATIVE: CASE EVENT DATE: 20220209
